FAERS Safety Report 6620513-1 (Version None)
Quarter: 2010Q1

REPORT INFORMATION
  Report Type: 
  Country: None (occurrence: None)
  Receive Date: 20100304
  Receipt Date: 20100216
  Transmission Date: 20100710
  Serious: Yes (Death, Hospitalization, Other)
  Sender: FDA-Public Use
  Company Number: KV201000004

PATIENT
  Age: 65 Year
  Sex: Male

DRUGS (10)
  1. MORPHINE SULFATE [Suspect]
     Indication: PANCREATITIS
     Dosage: 60 MG, TID, ORAL
     Route: 048
     Dates: end: 20080114
  2. LANTUS [Concomitant]
  3. VALIUM [Concomitant]
  4. AMBIEN [Concomitant]
  5. OXYCODONE HCL [Concomitant]
  6. PROTONIX [Concomitant]
  7. ZANTAC /00550802/ (RANITIDINE HYDROCHLORIDE) [Concomitant]
  8. PANCREASE /00014701/ (PANCREATIN) [Concomitant]
  9. ADVAIR DISKUS 100/50 [Concomitant]
  10. CLONAZEPAM [Concomitant]

REACTIONS (7)
  - CARDIAC ARREST [None]
  - DISEASE RECURRENCE [None]
  - PNEUMONIA [None]
  - RESPIRATORY DISTRESS [None]
  - RESPIRATORY FAILURE [None]
  - SUDDEN CARDIAC DEATH [None]
  - UNRESPONSIVE TO STIMULI [None]
